FAERS Safety Report 6245971-6 (Version None)
Quarter: 2009Q2

REPORT INFORMATION
  Report Type: 
  Country: None (occurrence: None)
  Receive Date: 20090626
  Receipt Date: 20080911
  Transmission Date: 20091009
  Serious: No
  Sender: FDA-Public Use
  Company Number: A0747283A

PATIENT
  Sex: Female

DRUGS (8)
  1. IMITREX [Suspect]
     Indication: MIGRAINE
     Dosage: 50MG AS REQUIRED
     Route: 048
  2. TOPAMAX [Concomitant]
     Indication: MIGRAINE PROPHYLAXIS
  3. BUTALBITAL [Concomitant]
  4. TOPROL-XL [Concomitant]
  5. AMITRIPTYLINE HCL [Concomitant]
     Indication: MIGRAINE PROPHYLAXIS
  6. ESTRADIOL [Concomitant]
  7. TRIAMTERENE AND HYDROCHLOROTHIAZIDE [Concomitant]
  8. POTASSIUM CHLORIDE [Concomitant]

REACTIONS (3)
  - DRUG INEFFECTIVE [None]
  - HEADACHE [None]
  - THERAPEUTIC RESPONSE DECREASED [None]
